FAERS Safety Report 6863529-2 (Version None)
Quarter: 2010Q3

REPORT INFORMATION
  Report Type: 
  Country: None (occurrence: None)
  Receive Date: 20100720
  Receipt Date: 20100705
  Transmission Date: 20110219
  Serious: Yes (Hospitalization)
  Sender: FDA-Public Use
  Company Number: B0665494A

PATIENT
  Age: 22 Year
  Sex: Female

DRUGS (4)
  1. AMOXICILLIN TRIHYDRATE [Suspect]
     Indication: BRONCHITIS
  2. ASPIRIN [Suspect]
     Indication: BRONCHITIS
  3. PARACETAMOL + PSEUDOEPHEDRINE ((ACETAMINOPHEN + PSEUDOEPH) (FORMULATIO [Suspect]
     Indication: BRONCHITIS
  4. BETA-LACTAMASE INHIBITOR (BETA-LACTAMASE INHIBITOR) (FORMULATION UNKNO [Suspect]
     Indication: BRONCHITIS

REACTIONS (14)
  - ALANINE AMINOTRANSFERASE INCREASED [None]
  - ANAEMIA [None]
  - ASPARTATE AMINOTRANSFERASE INCREASED [None]
  - ASTHENIA [None]
  - DIALYSIS [None]
  - GENERAL PHYSICAL HEALTH DETERIORATION [None]
  - HYPERGLYCAEMIA [None]
  - LEUKOPENIA [None]
  - MALAISE [None]
  - MYALGIA [None]
  - PNEUMONIA [None]
  - TOXIC EPIDERMAL NECROLYSIS [None]
  - ULCERATIVE KERATITIS [None]
  - XEROPHTHALMIA [None]
